FAERS Safety Report 8966274 (Version 1)
Quarter: 2012Q4

REPORT INFORMATION
  Report Type: 
  Country: TR (occurrence: TR)
  Receive Date: 20121217
  Receipt Date: 20121217
  Transmission Date: 20130627
  Serious: Yes (Life-Threatening)
  Sender: FDA-Public Use
  Company Number: TR-BAYER-2012-127771

PATIENT
  Sex: Female
  Weight: 75 kg

DRUGS (1)
  1. NEXAVAR [Suspect]
     Indication: GASTROINTESTINAL STROMAL TUMOR
     Dosage: 800mg, UNK
     Route: 048
     Dates: start: 20121011, end: 20121021

REACTIONS (2)
  - Thrombocytopenia [Recovering/Resolving]
  - Off label use [None]
